FAERS Safety Report 9032543 (Version 2)
Quarter: 2013Q1

REPORT INFORMATION
  Report Type: Spontaneous
  Country: BR (occurrence: BR)
  Receive Date: 20130125
  Receipt Date: 20130220
  Transmission Date: 20140127
  Serious: Yes (Hospitalization)
  Sender: FDA-Public Use
  Company Number: PHHY2013BR005053

PATIENT
  Age: 3 Year
  Sex: Male

DRUGS (1)
  1. TEGRETOL LP [Suspect]
     Dosage: UNK UKN, UNK
     Dates: start: 20130115

REACTIONS (6)
  - Somnolence [Not Recovered/Not Resolved]
  - Malaise [Unknown]
  - Dizziness [Not Recovered/Not Resolved]
  - Vomiting [Not Recovered/Not Resolved]
  - Nausea [Not Recovered/Not Resolved]
  - Wrong drug administered [Unknown]
